FAERS Safety Report 4988019-3 (Version None)
Quarter: 2006Q1

REPORT INFORMATION
  Report Type: 
  Country: None (occurrence: None)
  Receive Date: 20060309
  Receipt Date: 20050421
  Transmission Date: 20060701
  Serious: Yes (Hospitalization)
  Sender: FDA-Public Use
  Company Number: GXBR2005US00770

PATIENT
  Age: 37 Year
  Sex: Male
  Weight: 86.2 kg

DRUGS (5)
  1. MEFLOQUINE HCL [Suspect]
     Indication: MALARIA PROPHYLAXIS
     Dosage: 250 MG QW, ORAL
     Route: 047
     Dates: start: 20050308, end: 20050412
  2. ALBUTEROL [Concomitant]
  3. ADVAIR DISKUS (FLUTICASONE PROPIONATE, SALMETEROL XINAFOATE) [Concomitant]
  4. PREDNISONE TAB [Concomitant]
  5. Z-PAK (AZITHROMYCIN) [Concomitant]

REACTIONS (1)
  - PLATELET COUNT DECREASED [None]
